FAERS Safety Report 15576353 (Version 2)
Quarter: 2018Q4

REPORT INFORMATION
  Report Type: Report from Study
  Country: US (occurrence: US)
  Receive Date: 20181101
  Receipt Date: 20181121
  Transmission Date: 20190205
  Serious: Yes (Hospitalization, Other)
  Sender: FDA-Public Use
  Company Number: US-ADAMAS PHARMA, LLC-2018ADA00865

PATIENT
  Age: 77 Year
  Sex: Female

DRUGS (14)
  1. TRAZODONE [Concomitant]
     Active Substance: TRAZODONE HYDROCHLORIDE
  2. GOCOVRI [Suspect]
     Active Substance: AMANTADINE
     Dosage: UNK
     Route: 048
     Dates: start: 20180407
  3. GOCOVRI [Suspect]
     Active Substance: AMANTADINE
     Indication: DYSKINESIA
     Dosage: 137 MG, 1X/DAY AT BEDTIME
     Route: 048
     Dates: start: 20180403, end: 20180406
  4. SINEMET [Concomitant]
     Active Substance: CARBIDOPA\LEVODOPA
  5. WELLBUTRIN SR [Concomitant]
     Active Substance: BUPROPION HYDROCHLORIDE
  6. XANAX [Concomitant]
     Active Substance: ALPRAZOLAM
  7. GOCOVRI [Suspect]
     Active Substance: AMANTADINE
     Dosage: 68.5 MG, 1X/DAY AT BEDTIME
     Route: 048
     Dates: start: 2018, end: 2018
  8. LEVOTHYROXINE. [Concomitant]
     Active Substance: LEVOTHYROXINE
  9. PRAMIPEXOLE ER [Concomitant]
     Active Substance: PRAMIPEXOLE DIHYDROCHLORIDE
  10. VITAMIN B12 [Concomitant]
     Active Substance: CYANOCOBALAMIN
  11. VITAMIN D3 [Concomitant]
     Active Substance: CHOLECALCIFEROL
  12. BACTRIM DS [Concomitant]
     Active Substance: SULFAMETHOXAZOLE\TRIMETHOPRIM
  13. A-HYDROCORT [Concomitant]
     Active Substance: HYDROCORTISONE SODIUM SUCCINATE
  14. MIRTAZAPINE. [Concomitant]
     Active Substance: MIRTAZAPINE

REACTIONS (14)
  - Aphasia [Recovered/Resolved]
  - Insomnia [Recovered/Resolved]
  - Decreased appetite [Unknown]
  - Weight decreased [Unknown]
  - Fall [Unknown]
  - Abdominal pain upper [Unknown]
  - Confusional state [Unknown]
  - Fracture [Unknown]
  - Tremor [Recovered/Resolved]
  - Weight increased [Unknown]
  - Feeding disorder [Recovered/Resolved]
  - Gait inability [Recovered/Resolved]
  - Clavicle fracture [Recovered/Resolved]
  - Gastrostomy [Recovered/Resolved]

NARRATIVE: CASE EVENT DATE: 2018
